FAERS Safety Report 8838691 (Version 1)
Quarter: 2012Q4

REPORT INFORMATION
  Report Type: 
  Country: CO (occurrence: CO)
  Receive Date: 20121012
  Receipt Date: 20121012
  Transmission Date: 20130627
  Serious: Yes (Hospitalization, Other)
  Sender: FDA-Public Use
  Company Number: CO-PFIZER INC-2012253570

PATIENT
  Age: 41 Year
  Sex: Female

DRUGS (10)
  1. LYRICA [Suspect]
     Indication: PAIN
     Dosage: UNK
     Route: 065
     Dates: start: 200904
  2. AMITRIPTYLINE [Concomitant]
     Indication: INSOMNIA
     Dosage: 25 mg, 4x/day, 2 in the morning and 2 at night of 25 mg
     Route: 048
     Dates: start: 2008
  3. FLUOXETINE [Concomitant]
     Indication: ANXIETY
     Dosage: 20 mg, 1x/day
     Route: 048
     Dates: start: 2008
  4. DICLOFENAC [Concomitant]
     Indication: PAIN
     Dosage: 75 mg/2mL, alternate day
     Route: 030
     Dates: start: 2008
  5. TRAMADOL/ACETAMINOPHEN [Concomitant]
     Indication: PAIN
     Dosage: 37.5;325mh,(each 12 hours)
     Route: 065
  6. THIAMINE [Concomitant]
     Indication: MUSCLE DISORDER
     Dosage: 100mg/12.5mL, weekly
     Route: 030
  7. FOLIC ACID [Concomitant]
     Indication: HAEMOGLOBIN
     Dosage: 1 mg, 1x/day
     Route: 048
  8. BACLOFEN [Concomitant]
     Indication: MUSCLE SPASMS
     Dosage: one tablet and a half of 10 mg, each 8 hours
     Route: 048
  9. METHOCARBAMOL [Concomitant]
     Indication: MUSCLE DISORDER
     Dosage: 750 mg, 1x/day
     Route: 048
  10. BISACODYL [Concomitant]
     Indication: DYSPEPSIA
     Dosage: 5 mg, 2x/day

REACTIONS (4)
  - Pneumonia [Recovered/Resolved]
  - Lung disorder [Unknown]
  - Pleural effusion [Unknown]
  - Pulmonary congestion [Not Recovered/Not Resolved]
